FAERS Safety Report 4733358-4 (Version None)
Quarter: 2005Q3

REPORT INFORMATION
  Report Type: 
  Country: None (occurrence: None)
  Receive Date: 20050801
  Receipt Date: 20050801
  Transmission Date: 20060218
  Serious: Yes (Disabling)
  Sender: FDA-Public Use
  Company Number: None

PATIENT
  Age: 51 Year
  Sex: Male
  Weight: 88.4514 kg

DRUGS (8)
  1. REMICADE [Suspect]
     Indication: COLITIS ULCERATIVE
     Dosage: INFUSION EVERY 8 WKS DOSE UNKNOWN
     Route: 065
     Dates: start: 20031030, end: 20050105
  2. REMICADE [Suspect]
     Indication: CROHN'S DISEASE
     Dosage: INFUSION EVERY 8 WKS DOSE UNKNOWN
     Route: 065
     Dates: start: 20031030, end: 20050105
  3. PREDNISONE [Concomitant]
  4. AZATHIOPRINE [Concomitant]
  5. TOPROL-XL [Concomitant]
  6. ASPIRIN [Concomitant]
  7. PRILOSEC [Concomitant]
  8. CALTRATE [Concomitant]

REACTIONS (15)
  - ARTHRITIS [None]
  - BACK PAIN [None]
  - CHILLS [None]
  - COMPUTERISED TOMOGRAM ABNORMAL [None]
  - CORONARY ARTERY DISEASE [None]
  - DYSPHAGIA [None]
  - DYSPNOEA [None]
  - EYE INFLAMMATION [None]
  - MONONEUROPATHY MULTIPLEX [None]
  - OEDEMA PERIPHERAL [None]
  - PLEURITIC PAIN [None]
  - SCOLIOSIS [None]
  - SPINAL COLUMN STENOSIS [None]
  - VASCULITIS [None]
  - VITREOUS DETACHMENT [None]
